FAERS Safety Report 19928059 (Version 1)
Quarter: 2021Q4

REPORT INFORMATION
  Report Type: Spontaneous
  Country: US (occurrence: US)
  Receive Date: 20211006
  Receipt Date: 20211006
  Transmission Date: 20220304
  Serious: Yes (Other)
  Sender: FDA-Public Use
  Company Number: None

PATIENT
  Age: 39 Year
  Sex: Female
  Weight: 69.75 kg

DRUGS (1)
  1. EUTHYROX [Suspect]
     Active Substance: LEVOTHYROXINE SODIUM
     Indication: Hypothyroidism
     Dosage: ?          QUANTITY:1 TABLET(S);
     Route: 048
     Dates: start: 20210808, end: 20211006

REACTIONS (8)
  - Product substitution issue [None]
  - Alopecia [None]
  - Myalgia [None]
  - Mood altered [None]
  - Heart rate irregular [None]
  - Insomnia [None]
  - Pain [None]
  - Body temperature fluctuation [None]

NARRATIVE: CASE EVENT DATE: 20210901
